FAERS Safety Report 5827805-4 (Version None)
Quarter: 2008Q3

REPORT INFORMATION
  Report Type: 
  Country: None (occurrence: None)
  Receive Date: 20080730
  Receipt Date: 20080724
  Transmission Date: 20090109
  Serious: Yes (Hospitalization)
  Sender: FDA-Public Use
  Company Number: US-MERCK-0805USA05649

PATIENT
  Age: 11 Year
  Sex: Male
  Weight: 38 kg

DRUGS (3)
  1. SINGULAIR [Suspect]
     Route: 048
     Dates: start: 20000101, end: 20080101
  2. ADVAIR DISKUS 100/50 [Concomitant]
     Route: 065
  3. XOPENEX [Concomitant]
     Route: 065

REACTIONS (2)
  - MOOD SWINGS [None]
  - SUICIDAL IDEATION [None]
